FAERS Safety Report 5664932-9 (Version None)
Quarter: 2008Q1

REPORT INFORMATION
  Report Type: 
  Country: None (occurrence: None)
  Receive Date: 20080314
  Receipt Date: 20080303
  Transmission Date: 20080703
  Serious: Yes (Other)
  Sender: FDA-Public Use
  Company Number: US-PFIZER INC-2008011751

PATIENT
  Sex: Female
  Weight: 107 kg

DRUGS (8)
  1. CHANTIX [Suspect]
     Indication: SMOKING CESSATION THERAPY
  2. MESTINON [Suspect]
  3. CELEXA [Concomitant]
  4. HYDROCODONE BITARTRATE + ACETAMINOPHEN [Concomitant]
  5. AMLODIPINE [Concomitant]
  6. PAXIL CR [Concomitant]
  7. CELEBREX [Concomitant]
  8. ACYCLOVIR [Concomitant]

REACTIONS (3)
  - DRUG INEFFECTIVE [None]
  - FACIAL PALSY [None]
  - MYASTHENIA GRAVIS [None]
